FAERS Safety Report 20438133 (Version 1)
Quarter: 2022Q1

REPORT INFORMATION
  Report Type: Spontaneous
  Country: DE (occurrence: DE)
  Receive Date: 20220207
  Receipt Date: 20220207
  Transmission Date: 20220423
  Serious: No
  Sender: FDA-Public Use
  Company Number: None

PATIENT
  Sex: Male
  Weight: 93 kg

DRUGS (10)
  1. PREGABALIN [Suspect]
     Active Substance: PREGABALIN
     Indication: Product used for unknown indication
     Dosage: OD (EVERY 1 DAY)
     Route: 065
     Dates: start: 201110
  2. PALEXIA [Suspect]
     Active Substance: TAPENTADOL HYDROCHLORIDE
     Indication: Product used for unknown indication
     Dosage: 2 DOSAGE FORM, OD (EVERY 1 DAY)
     Route: 065
     Dates: start: 201510
  3. PREGABALIN [Suspect]
     Active Substance: PREGABALIN
     Indication: Product used for unknown indication
     Dosage: 1 DOSAGE FORM, OD (EVERY 1 DAY)
     Route: 065
     Dates: start: 202110
  4. VAXZEVRIA [Suspect]
     Active Substance: AZD-1222
     Indication: Product used for unknown indication
     Dosage: UNK
     Route: 065
     Dates: start: 20210531, end: 20210531
  5. VAXZEVRIA [Suspect]
     Active Substance: AZD-1222
     Dosage: UNK
     Route: 065
     Dates: start: 20210315, end: 20210315
  6. CLOPIDOGREL [Concomitant]
     Active Substance: CLOPIDOGREL BISULFATE
     Indication: Product used for unknown indication
     Dosage: OD (EVERY 1 DAY)
     Route: 065
     Dates: start: 201510
  7. Glucophage 1000mg [Concomitant]
     Indication: Product used for unknown indication
     Dosage: OD (EVERY 1 DAY)
     Route: 065
     Dates: start: 200610
  8. L-Thyroxin Aristo 125 Mikrogramm [Concomitant]
     Indication: Product used for unknown indication
     Dosage: OD (EVERY 1 DAY)
     Route: 065
     Dates: start: 199110
  9. Rosuvastatin Elpen 5mg [Concomitant]
     Indication: Product used for unknown indication
     Dosage: PRN (1 AS NECESSARY)
     Route: 065
     Dates: start: 201910
  10. Telmisartan comp. ratiopharm 80 mg /12,5mg [Concomitant]
     Indication: Product used for unknown indication
     Dosage: OD (EVERY 1 DAY)
     Route: 065
     Dates: start: 201110

REACTIONS (2)
  - Rhinorrhoea [Not Recovered/Not Resolved]
  - Pruritus [Not Recovered/Not Resolved]

NARRATIVE: CASE EVENT DATE: 20210401
